FAERS Safety Report 8914404 (Version 2)
Quarter: 2012Q4

REPORT INFORMATION
  Report Type: 
  Country: US (occurrence: US)
  Receive Date: 20121116
  Receipt Date: 20121214
  Transmission Date: 20130627
  Serious: Yes (Other)
  Sender: FDA-Public Use
  Company Number: US-PERRIGO-12US009737

PATIENT
  Sex: Male
  Weight: 115.19 kg

DRUGS (1)
  1. TOLNAFTATE [Suspect]
     Indication: TINEA PEDIS
     Dosage: 1 application, PRN
     Route: 061
     Dates: start: 201201, end: 20121105

REACTIONS (5)
  - Shock [Recovered/Resolved]
  - Pharyngeal oedema [Recovered/Resolved]
  - Pharyngeal hypoaesthesia [Recovered/Resolved]
  - Dyspnoea [Recovered/Resolved]
  - Skin irritation [Recovered/Resolved]
